FAERS Safety Report 9539224 (Version 1)
Quarter: 2013Q3

REPORT INFORMATION
  Report Type: Spontaneous
  Country: US (occurrence: None)
  Receive Date: 20130917
  Receipt Date: 20130917
  Transmission Date: 20140515
  Serious: Yes (Other)
  Sender: FDA-Public Use
  Company Number: CL-518-2013

PATIENT
  Age: 63 Day
  Sex: Male

DRUGS (4)
  1. CIPROFLOXACIN [Suspect]
     Indication: POSTOPERATIVE WOUND COMPLICATION
     Dosage: UNK UNK TRANSMAMMARY
     Route: 063
  2. IBUPROFEN [Suspect]
     Indication: HEADACHE
     Dosage: 600 MG 4X/D TRANSMAMMARY
     Route: 063
  3. PARACETAMOL [Suspect]
     Indication: HEADACHE
     Dosage: 4 G, 1X/ DAY; TRANSMAMMARY
     Route: 063
  4. THEOPHYLLINE [Suspect]
     Indication: HEADACHE
     Dosage: 125 MG, 1X/DAY; TRANSMAMMARY
     Route: 063

REACTIONS (2)
  - Exposure during breast feeding [None]
  - Hepatobiliary disease [None]
